FAERS Safety Report 4632417-4 (Version None)
Quarter: 2005Q2

REPORT INFORMATION
  Report Type: 
  Country: None (occurrence: None)
  Receive Date: 20050411
  Receipt Date: 20050330
  Transmission Date: 20051028
  Serious: Yes (Other)
  Sender: FDA-Public Use
  Company Number: GB-JNJFOC-20050400063

PATIENT
  Sex: Female
  Weight: 50 kg

DRUGS (1)
  1. PROPULSID [Suspect]
     Indication: OESOPHAGEAL DISORDER
     Route: 065
     Dates: start: 20020708

REACTIONS (1)
  - CEREBROVASCULAR ACCIDENT [None]
